FAERS Safety Report 25180042 (Version 1)
Quarter: 2025Q2

REPORT INFORMATION
  Report Type: Spontaneous
  Country: US (occurrence: US)
  Receive Date: 20250409
  Receipt Date: 20250409
  Transmission Date: 20250716
  Serious: No
  Sender: PFIZER
  Company Number: US-PFIZER INC-PV202500040178

PATIENT
  Age: 67 Year

DRUGS (2)
  1. TESSALON [Suspect]
     Active Substance: BENZONATATE
     Indication: Cough
  2. TESSALON [Suspect]
     Active Substance: BENZONATATE
     Indication: COVID-19

REACTIONS (1)
  - Drug ineffective [Unknown]
